FAERS Safety Report 7936765-1 (Version None)
Quarter: 2011Q4

REPORT INFORMATION
  Report Type: 
  Country: None (occurrence: None)
  Receive Date: 20111121
  Receipt Date: 20111107
  Transmission Date: 20120403
  Serious: Yes (Hospitalization)
  Sender: FDA-Public Use
  Company Number: 1000025514

PATIENT
  Age: 83 Year
  Sex: Female

DRUGS (13)
  1. MIRTAZAPINE [Concomitant]
  2. RAMIPRIL [Suspect]
     Dosage: 10 MG (10 MG, 1 IN 1 D), ORAL
     Route: 048
     Dates: end: 20110716
  3. LAIF (HYPERICUM PERFORATION) (HYPERICUM PERFORATION) [Concomitant]
  4. L-THYROXIN (LEVOTHYROXINE SODIUM) (LEVOTHYROXINE SODIUM) [Concomitant]
  5. NITRENDIPIN (NITRENDIPINE) (NITRENDIPINE) [Concomitant]
  6. OPIPRAMOL (OPIPRAMOL) (OPIPRAMOL) [Concomitant]
  7. CITALOPRAM HYDROBROMIDE [Suspect]
     Dosage: 20 MG (20 MG, 1 IN 1 D), ORAL
     Route: 048
     Dates: start: 20110603, end: 20110701
  8. BISOPROLOL FUMARATE [Concomitant]
  9. FORMATRIS (FORMOTEROL FUMARATE) (FORMOTEROL FUMARATE) [Concomitant]
  10. SPIRIVA (TIOTROPIUM BROMIDE) (TIOTROPIUM BROMIDE) [Concomitant]
  11. ASS (ACETYLSALICYLIC ACID) (ACETYLSALICYLIC ACID) [Concomitant]
  12. HYDROCHLOROTHIAZIDE [Suspect]
     Dosage: 25 MG (25 MG, 1 IN 1 D), ORAL
     Route: 048
  13. RASILEZ (ALISKIREN FUMARATE) (ALISKIREN FUMARATE) [Concomitant]

REACTIONS (2)
  - POTENTIATING DRUG INTERACTION [None]
  - HYPONATRAEMIA [None]
